FAERS Safety Report 8127516-9 (Version None)
Quarter: 2012Q1

REPORT INFORMATION
  Report Type: 
  Country: None (occurrence: None)
  Receive Date: 20120210
  Receipt Date: 20120208
  Transmission Date: 20120608
  Serious: Yes (Death, Other)
  Sender: FDA-Public Use
  Company Number: DK-PFIZER INC-2011109963

PATIENT
  Age: 58 Year
  Weight: 56 kg

DRUGS (7)
  1. KETOBEMIDONE [Suspect]
  2. ALPRAZOLAM [Suspect]
  3. DIAZEPAM [Suspect]
  4. AMLODIPINE BESYLATE [Suspect]
  5. MIANSERIN [Suspect]
  6. FLUNITRAZEPAM [Suspect]
  7. CITALOPRAM [Suspect]

REACTIONS (2)
  - DEATH [None]
  - TOXICITY TO VARIOUS AGENTS [None]
